FAERS Safety Report 13503563 (Version 2)
Quarter: 2017Q2

REPORT INFORMATION
  Report Type: Spontaneous
  Country: SE (occurrence: SE)
  Receive Date: 20170502
  Receipt Date: 20170614
  Transmission Date: 20170830
  Serious: Yes (Other)
  Sender: FDA-Public Use
  Company Number: SE-PFIZER INC-2017185200

PATIENT
  Sex: Male

DRUGS (3)
  1. BRICANYL [Concomitant]
     Active Substance: TERBUTALINE SULFATE
     Dosage: TWO INJECTIONS
     Route: 064
     Dates: start: 201608, end: 20160818
  2. CYTOTEC [Suspect]
     Active Substance: MISOPROSTOL
     Indication: LABOUR INDUCTION
     Dosage: TWO DOSES A 25 UG DISOLVED IN WATER
     Route: 064
     Dates: start: 201608, end: 201608
  3. OXYTOCIN PILUM [Concomitant]
     Route: 064
     Dates: start: 201608, end: 20160818

REACTIONS (3)
  - Foetal exposure during pregnancy [Recovered/Resolved]
  - Bradycardia [Recovered/Resolved]
  - Neonatal asphyxia [Recovered/Resolved]

NARRATIVE: CASE EVENT DATE: 201608
